FAERS Safety Report 7005151-3 (Version None)
Quarter: 2010Q3

REPORT INFORMATION
  Report Type: 
  Country: None (occurrence: None)
  Receive Date: 20100921
  Receipt Date: 20100908
  Transmission Date: 20110219
  Serious: Yes (Death, Hospitalization, Other)
  Sender: FDA-Public Use
  Company Number: US-SANOFI-AVENTIS-2010SA039686

PATIENT
  Sex: Female
  Weight: 59.1 kg

DRUGS (33)
  1. LEVAQUIN [Suspect]
     Indication: CHRONIC OBSTRUCTIVE PULMONARY DISEASE
     Route: 048
     Dates: start: 20100330
  2. DRONEDARONE HCL [Suspect]
     Indication: ATRIAL FIBRILLATION
     Route: 048
  3. INSULIN [Concomitant]
  4. SENNA SYRUP [Concomitant]
  5. ASPIRIN [Concomitant]
  6. LACTULOSE [Concomitant]
  7. TEMAZEPAM [Concomitant]
  8. ENOXAPARIN SODIUM [Concomitant]
  9. BISACODYL [Concomitant]
  10. LORATADINE [Concomitant]
  11. FAMOTIDINE [Concomitant]
  12. PANTOPRAZOLE [Concomitant]
  13. PREDNISONE [Concomitant]
  14. ALBUTEROL [Concomitant]
  15. CALCIUM CARBONATE [Concomitant]
  16. LOVASTATIN [Concomitant]
  17. CILOSTAZOL [Concomitant]
  18. METHOCARBAMOL [Concomitant]
  19. CLOPIDOGREL [Concomitant]
  20. METHYLPREDNISOLONE [Concomitant]
  21. CYANOCOBALAMIN [Concomitant]
  22. MULTI-VITAMINS [Concomitant]
  23. DIGOXIN [Concomitant]
  24. NITROGLYCERIN [Concomitant]
  25. DILTIAZEM [Concomitant]
  26. ONDANSETRON [Concomitant]
  27. DOXYCYCLINE [Concomitant]
  28. PROMETHAZINE [Concomitant]
  29. ALL OTHER THERAPEUTIC PRODUCTS [Concomitant]
  30. ACETAMINOPHEN [Concomitant]
  31. HYDROCODONE [Concomitant]
  32. PROPOXYPHENE HCL [Concomitant]
  33. ALUMINUM HYDROXIDE GEL [Concomitant]

REACTIONS (2)
  - TORSADE DE POINTES [None]
  - VENTRICULAR TACHYCARDIA [None]
